FAERS Safety Report 8105823-3 (Version None)
Quarter: 2012Q1

REPORT INFORMATION
  Report Type: 
  Country: None (occurrence: None)
  Receive Date: 20120201
  Receipt Date: 20120125
  Transmission Date: 20120608
  Serious: Yes (Hospitalization)
  Sender: FDA-Public Use
  Company Number: US-AMGEN-USASP2011030867

PATIENT
  Age: 54 Year
  Sex: Female
  Weight: 90.249 kg

DRUGS (3)
  1. ENBREL [Suspect]
     Indication: RHEUMATOID ARTHRITIS
     Dosage: 50 MG, QWK
     Dates: start: 20090202
  2. NEXIUM [Concomitant]
  3. SYNTHROID [Concomitant]

REACTIONS (2)
  - FEELING HOT [None]
  - CHOLELITHIASIS [None]
